FAERS Safety Report 24634503 (Version 1)
Quarter: 2024Q4

REPORT INFORMATION
  Report Type: Report from Study
  Country: AR (occurrence: AR)
  Receive Date: 20241119
  Receipt Date: 20241119
  Transmission Date: 20250115
  Serious: Yes (Other)
  Sender: ABBVIE
  Company Number: AR-ABBVIE-6006713

PATIENT
  Age: 30 Year
  Sex: Female

DRUGS (1)
  1. SKYRIZI [Suspect]
     Active Substance: RISANKIZUMAB-RZAA
     Indication: Psoriatic arthropathy
     Dosage: LAST ADMIN DATE 2024, - FORM STRENGTH: 150 MG
     Route: 058
     Dates: start: 20240215

REACTIONS (4)
  - Synovial cyst [Unknown]
  - Syphilis [Not Recovered/Not Resolved]
  - Inflammation [Unknown]
  - Candida infection [Unknown]

NARRATIVE: CASE EVENT DATE: 20240101
